FAERS Safety Report 9426259 (Version 1)
Quarter: 2013Q3

REPORT INFORMATION
  Report Type: Spontaneous
  Country: US (occurrence: US)
  Receive Date: 20130730
  Receipt Date: 20130730
  Transmission Date: 20140515
  Serious: No
  Sender: FDA-Public Use
  Company Number: US-009507513-1307USA013833

PATIENT
  Age: 17 Year
  Sex: 0

DRUGS (1)
  1. NUVARING [Suspect]
     Dosage: 3 WEEKS IN, 1 WEEK OUT, 1RING
     Route: 067
     Dates: start: 20130710

REACTIONS (1)
  - Inappropriate schedule of drug administration [Unknown]
